FAERS Safety Report 7472875-3 (Version None)
Quarter: 2011Q2

REPORT INFORMATION
  Report Type: 
  Country: None (occurrence: None)
  Receive Date: 20110511
  Receipt Date: 20110427
  Transmission Date: 20111010
  Serious: Yes (Other)
  Sender: FDA-Public Use
  Company Number: JP-JNJFOC-20110412075

PATIENT
  Age: 63 Year
  Sex: Male

DRUGS (5)
  1. LONASEN [Concomitant]
     Route: 048
  2. SEROQUEL [Concomitant]
     Indication: SCHIZOPHRENIA
     Route: 048
  3. INVEGA [Suspect]
     Indication: SCHIZOPHRENIA
     Route: 048
  4. LONASEN [Concomitant]
     Indication: SCHIZOPHRENIA
     Route: 048
  5. VALPROATE SODIUM [Concomitant]
     Route: 048

REACTIONS (1)
  - HYPOXIC-ISCHAEMIC ENCEPHALOPATHY [None]
